FAERS Safety Report 11080835 (Version 1)
Quarter: 2015Q2

REPORT INFORMATION
  Report Type: Spontaneous
  Country: None (occurrence: None)
  Receive Date: 20150430
  Receipt Date: 20150430
  Transmission Date: 20150821
  Serious: No
  Sender: FDA-Public Use
  Company Number: None

PATIENT
  Age: 71 Year
  Sex: Female
  Weight: 92.9 kg

DRUGS (4)
  1. REGULAR INSULIN SLIDING SCALE COVERAGE [Concomitant]
  2. METOPROLOL [Concomitant]
     Active Substance: METOPROLOL
  3. SODIUM FERRIC GLUCONATE [Suspect]
     Active Substance: SODIUM FERRIC GLUCONATE COMPLEX
     Dosage: 5 DOSES
     Route: 042
  4. NPH INSULIN [Concomitant]
     Active Substance: INSULIN BEEF

REACTIONS (1)
  - Chest pain [None]

NARRATIVE: CASE EVENT DATE: 20150429
